FAERS Safety Report 6996543-7 (Version None)
Quarter: 2010Q3

REPORT INFORMATION
  Report Type: 
  Country: None (occurrence: None)
  Receive Date: 20100918
  Receipt Date: 20090421
  Transmission Date: 20110219
  Serious: No
  Sender: FDA-Public Use
  Company Number: US-WYE-H09075809

PATIENT
  Age: 54 Year
  Sex: Female
  Weight: 57.2 kg

DRUGS (1)
  1. PREMPRO [Suspect]
     Indication: HORMONE REPLACEMENT THERAPY
     Route: 048
     Dates: start: 20080801

REACTIONS (2)
  - COELIAC DISEASE [None]
  - LACTOSE INTOLERANCE [None]
